FAERS Safety Report 5719792-4 (Version None)
Quarter: 2008Q2

REPORT INFORMATION
  Report Type: 
  Country: None (occurrence: None)
  Receive Date: 20080423
  Receipt Date: 20070322
  Transmission Date: 20081010
  Serious: Yes (Other)
  Sender: FDA-Public Use
  Company Number: 237786

PATIENT
  Age: 89 Year
  Sex: Female
  Weight: 63.9 kg

DRUGS (9)
  1. AVASTIN [Suspect]
     Indication: COLON CANCER
     Dosage: 350 MG, Q2W, INTRAVENOUS ; 300 MG
     Route: 042
     Dates: start: 20050703, end: 20070109
  2. XELODA [Concomitant]
  3. LYRICA [Concomitant]
  4. ISOPTIN [Concomitant]
  5. MEVACOR [Concomitant]
  6. XANAX [Concomitant]
  7. CAPOTEN [Concomitant]
  8. SYNTHROID [Concomitant]
  9. TYLENOL (CAPLET) [Concomitant]

REACTIONS (1)
  - PROTEINURIA [None]
